FAERS Safety Report 7217534-7 (Version None)
Quarter: 2011Q1

REPORT INFORMATION
  Report Type: 
  Country: None (occurrence: None)
  Receive Date: 20110110
  Receipt Date: 20110103
  Transmission Date: 20110831
  Serious: Yes (Hospitalization, Other)
  Sender: FDA-Public Use
  Company Number: FR-PFIZER INC-2011003546

PATIENT
  Age: 55 Year
  Sex: Male

DRUGS (13)
  1. TRIATEC [Concomitant]
  2. NOVONORM [Concomitant]
  3. CONTRAMAL [Concomitant]
  4. LASIX [Concomitant]
  5. CINACALCET [Concomitant]
  6. CARDENSIEL [Concomitant]
  7. ESOMEPRAZOLE [Concomitant]
  8. LANTUS [Concomitant]
  9. KARDEGIC [Concomitant]
  10. CORDARONE [Suspect]
     Dosage: 200 MG DAILY, 5X/WEEK
     Route: 048
     Dates: end: 20100801
  11. MEDIATENSYL [Concomitant]
  12. AMLOR [Concomitant]
  13. ARANESP [Concomitant]

REACTIONS (3)
  - HYPERTHYROIDISM [None]
  - LEG AMPUTATION [None]
  - PERIPHERAL ISCHAEMIA [None]
